FAERS Safety Report 8901095 (Version 4)
Quarter: 2013Q2

REPORT INFORMATION
  Report Type: Report from Study
  Country: JP (occurrence: JP)
  Receive Date: 20121109
  Receipt Date: 20130625
  Transmission Date: 20140414
  Serious: Yes (Hospitalization, Other)
  Sender: FDA-Public Use
  Company Number: JP-009507513-1211JPN000150

PATIENT
  Age: 68 Year
  Sex: Male
  Weight: 57 kg

DRUGS (18)
  1. PEGINTRON [Suspect]
     Indication: CHRONIC HEPATITIS C
     Dosage: 1.5 MICROGRAM PER KILOGRAM, QW
     Route: 058
     Dates: start: 20120911, end: 20121022
  2. PEGINTRON [Suspect]
     Dosage: 0.75 MICROGRAM PER KILOGRAM, QW
     Route: 058
     Dates: start: 20121023, end: 20121104
  3. PEGINTRON [Suspect]
     Dosage: 0.9375 MICROGRAM/KG/WEEK
     Route: 058
     Dates: start: 20121105, end: 20121111
  4. PEGINTRON [Suspect]
     Dosage: 0.75 MICROGRAM PER KILOGRAM, QW
     Route: 058
     Dates: start: 20121112, end: 20121125
  5. PEGINTRON [Suspect]
     Dosage: 0.5625 MICROGRAM/KG/WEEK
     Route: 058
     Dates: start: 20121126, end: 20121202
  6. PEGINTRON [Suspect]
     Dosage: 0.75 MICROGRAM PER KILOGRAM, QW
     Route: 058
     Dates: start: 20121203, end: 20121216
  7. PEGINTRON [Suspect]
     Dosage: 0.9375 MICROGRAM/KG/WEEK
     Route: 058
     Dates: start: 20121217, end: 20121224
  8. PEGINTRON [Suspect]
     Dosage: 1.125 MICROGRAM/KG/WEEK
     Route: 058
     Dates: start: 20121225, end: 20130106
  9. PEGINTRON [Suspect]
     Dosage: 1.3125 MICROGRAM/KG/WEEK
     Route: 058
     Dates: start: 20130107, end: 20130114
  10. PEGINTRON [Suspect]
     Dosage: 1.5 MICROGRAM PER KILOGRAM, QW
     Route: 058
     Dates: start: 20130115, end: 20130218
  11. REBETOL [Suspect]
     Indication: CHRONIC HEPATITIS C
     Dosage: 400 MG, QD
     Route: 048
     Dates: start: 20120911, end: 20121001
  12. REBETOL [Suspect]
     Dosage: 200 MG, QD
     Route: 048
     Dates: start: 20121002, end: 20130128
  13. REBETOL [Suspect]
     Dosage: 400 MG, QD
     Route: 048
     Dates: start: 20130129, end: 20130224
  14. TELAVIC [Suspect]
     Indication: CHRONIC HEPATITIS C
     Dosage: 1500 MG, QD
     Route: 048
     Dates: start: 20120911, end: 20121202
  15. CELTOP [Concomitant]
     Indication: HYPERTENSION
     Dosage: 200 MG, QD FORMULATION: POR
     Route: 048
  16. ATELEC [Concomitant]
     Indication: HYPERTENSION
     Dosage: 20 MG, QD FORMULATION: POR
     Route: 048
     Dates: end: 20121022
  17. FEBURIC [Concomitant]
     Indication: HYPERURICAEMIA
     Dosage: 10 MG, QD FORMULATION: POR
     Route: 048
     Dates: start: 20120911, end: 20120913
  18. FEBURIC [Concomitant]
     Dosage: 60 MG, QD FORMULATION: POR
     Route: 048

REACTIONS (2)
  - Renal impairment [Recovering/Resolving]
  - Neutrophil count decreased [Not Recovered/Not Resolved]
